FAERS Safety Report 19818498 (Version 1)
Quarter: 2021Q3

REPORT INFORMATION
  Report Type: Spontaneous
  Country: BB (occurrence: BB)
  Receive Date: 20210911
  Receipt Date: 20210911
  Transmission Date: 20211014
  Serious: Yes (Other)
  Sender: FDA-Public Use
  Company Number: NVSC2021BB201783

PATIENT
  Sex: Female

DRUGS (2)
  1. NEORAL [Suspect]
     Active Substance: CYCLOSPORINE
     Indication: PROPHYLAXIS AGAINST TRANSPLANT REJECTION
     Dosage: 25 MG, BID
     Route: 048
     Dates: start: 19920228
  2. NEORAL [Suspect]
     Active Substance: CYCLOSPORINE
     Dosage: 25 MG, BID
     Route: 048
     Dates: end: 20210816

REACTIONS (5)
  - Pelvic cyst [Unknown]
  - Uterine leiomyoma [Not Recovered/Not Resolved]
  - Uterine enlargement [Unknown]
  - Cervical cyst [Unknown]
  - Hydronephrosis [Unknown]
